FAERS Safety Report 16941196 (Version 1)
Quarter: 2019Q4

REPORT INFORMATION
  Report Type: Spontaneous
  Country: US (occurrence: US)
  Receive Date: 20191019
  Receipt Date: 20191019
  Transmission Date: 20200122
  Serious: Yes (Hospitalization, Disabling, Other)
  Sender: FDA-Public Use
  Company Number: None

PATIENT
  Age: 60 Year
  Sex: Female
  Weight: 64.35 kg

DRUGS (2)
  1. NP THYROID [Suspect]
     Active Substance: LEVOTHYROXINE\LIOTHYRONINE
     Indication: HYPOTHYROIDISM
     Dosage: ?          QUANTITY:2 TABLET(S);?
     Route: 048
     Dates: start: 20190312, end: 20191009
  2. NATURE-THROID [Suspect]
     Active Substance: THYROID, PORCINE
     Indication: HYPOTHYROIDISM
     Dosage: ?          QUANTITY:2 TABLET(S);?
     Route: 048

REACTIONS (10)
  - Palpitations [None]
  - Heart rate increased [None]
  - Ventricular extrasystoles [None]
  - Heart rate decreased [None]
  - Blood thyroid stimulating hormone decreased [None]
  - Tachycardia [None]
  - Suspected product quality issue [None]
  - Therapeutic product effect incomplete [None]
  - Recalled product [None]
  - Product substitution issue [None]

NARRATIVE: CASE EVENT DATE: 20191009
